FAERS Safety Report 23928264 (Version 1)
Quarter: 2024Q2

REPORT INFORMATION
  Report Type: Spontaneous
  Country: US (occurrence: US)
  Receive Date: 20240531
  Receipt Date: 20240531
  Transmission Date: 20240715
  Serious: No
  Sender: FDA-Public Use
  Company Number: US-RADIUS HEALTH INC.-2023US005209

PATIENT
  Sex: Male

DRUGS (1)
  1. TYMLOS [Suspect]
     Active Substance: ABALOPARATIDE
     Indication: Senile osteoporosis
     Dosage: 80 MICROGRAM, QD
     Route: 058
     Dates: start: 202306

REACTIONS (6)
  - Brain fog [Unknown]
  - Decreased appetite [Unknown]
  - Headache [Unknown]
  - Palpitations [Unknown]
  - Nausea [Unknown]
  - Intentional product misuse [Unknown]
